FAERS Safety Report 20549180 (Version 1)
Quarter: 2022Q1

REPORT INFORMATION
  Report Type: Spontaneous
  Country: CA (occurrence: CA)
  Receive Date: 20220303
  Receipt Date: 20220303
  Transmission Date: 20220424
  Serious: Yes (Death, Other)
  Sender: FDA-Public Use
  Company Number: CA-BAXTER-2022BAX004392

PATIENT
  Age: 50 Year
  Sex: Male

DRUGS (7)
  1. CYCLOPHOSPHAMIDE [Suspect]
     Active Substance: CYCLOPHOSPHAMIDE
     Indication: Lymphoma
     Dosage: DOSAGE FORM :NOT SPECIFIED
     Route: 065
  2. DOXORUBICIN HYDROCHLORIDE [Suspect]
     Active Substance: DOXORUBICIN HYDROCHLORIDE
     Indication: Product used for unknown indication
     Route: 042
  3. LAMIVUDINE [Suspect]
     Active Substance: LAMIVUDINE
     Indication: Lymphoma
     Dosage: DOSAGE FORM: NOT SPECIFIED
     Route: 065
  4. PREDNISOLONE [Suspect]
     Active Substance: PREDNISOLONE
     Indication: Lymphoma
     Dosage: DOSAGE FORM: NOT SPECIFIED
     Route: 065
  5. RITUXAN [Suspect]
     Active Substance: RITUXIMAB
     Indication: Lymphoma
     Route: 042
  6. VINCRISTINE SULFATE [Suspect]
     Active Substance: VINCRISTINE SULFATE
     Indication: Lymphoma
     Route: 065
  7. VIREAD [Suspect]
     Active Substance: TENOFOVIR DISOPROXIL FUMARATE
     Indication: Product used for unknown indication
     Dosage: TABLETS
     Route: 065

REACTIONS (9)
  - Acquired gene mutation [Fatal]
  - Condition aggravated [Fatal]
  - Death [Fatal]
  - Drug ineffective [Fatal]
  - Gene mutation [Fatal]
  - Hepatic failure [Fatal]
  - Hepatitis B [Fatal]
  - Hepatitis B reactivation [Fatal]
  - Neoplasm progression [Fatal]
